FAERS Safety Report 26026322 (Version 1)
Quarter: 2025Q4

REPORT INFORMATION
  Report Type: Spontaneous
  Country: GB (occurrence: GB)
  Receive Date: 20251111
  Receipt Date: 20251111
  Transmission Date: 20260118
  Serious: Yes (Other)
  Sender: AMGEN
  Company Number: GB-AMGEN-GBRSP2025216411

PATIENT

DRUGS (1)
  1. USTEKINUMAB [Suspect]
     Active Substance: USTEKINUMAB
     Indication: Crohn^s disease
     Dosage: 90 MILLIGRAM, Q8WK
     Route: 058
     Dates: start: 202212

REACTIONS (6)
  - Rectal haemorrhage [Unknown]
  - Mental disorder [Unknown]
  - Therapeutic response shortened [Unknown]
  - Depressed mood [Unknown]
  - Therapy interrupted [Unknown]
  - Headache [Unknown]
